FAERS Safety Report 18580103 (Version 4)
Quarter: 2021Q4

REPORT INFORMATION
  Report Type: Report from Study
  Country: DE (occurrence: DE)
  Receive Date: 20201204
  Receipt Date: 20211208
  Transmission Date: 20220303
  Serious: Yes (Other)
  Sender: FDA-Public Use
  Company Number: NVSC2020DE321783

PATIENT
  Sex: Female

DRUGS (1)
  1. COSENTYX [Suspect]
     Active Substance: SECUKINUMAB
     Indication: Axial spondyloarthritis
     Dosage: UNK
     Route: 065

REACTIONS (9)
  - Respiratory tract infection [Unknown]
  - Hypertensive urgency [Unknown]
  - Chlamydial infection [Unknown]
  - Axial spondyloarthritis [Unknown]
  - Epistaxis [Unknown]
  - Fall [Unknown]
  - Hand fracture [Unknown]
  - Osteoarthritis [Unknown]
  - Complex regional pain syndrome [Unknown]

NARRATIVE: CASE EVENT DATE: 20190603
